FAERS Safety Report 5507292-6 (Version None)
Quarter: 2007Q4

REPORT INFORMATION
  Report Type: 
  Country: None (occurrence: None)
  Receive Date: 20071106
  Receipt Date: 20071029
  Transmission Date: 20080405
  Serious: Yes (Hospitalization)
  Sender: FDA-Public Use
  Company Number: PHNU2007SI03632

PATIENT
  Age: 57 Year
  Sex: Female

DRUGS (4)
  1. EMSELEX EXTENDED RELEASE [Suspect]
     Indication: HYPERTONIC BLADDER
     Dosage: 7.5 MG DAILY
     Route: 048
     Dates: start: 20061024
  2. SERETIDE [Concomitant]
  3. NOLIPREL [Concomitant]
  4. FLUZEPAM [Concomitant]

REACTIONS (5)
  - BLOOD PRESSURE INCREASED [None]
  - BRONCHOPNEUMONIA [None]
  - DRY EYE [None]
  - DRY MOUTH [None]
  - DRY SKIN [None]
